FAERS Safety Report 8921343 (Version 3)
Quarter: 2012Q4

REPORT INFORMATION
  Report Type: Report from Study
  Country: CA (occurrence: CA)
  Receive Date: 20121121
  Receipt Date: 20121210
  Transmission Date: 20130627
  Serious: Yes (Hospitalization)
  Sender: FDA-Public Use
  Company Number: CA-JNJFOC-20121109121

PATIENT
  Age: 73 Year
  Sex: Female
  Weight: 108.41 kg

DRUGS (4)
  1. REMICADE [Suspect]
     Indication: PSORIASIS
     Route: 042
     Dates: start: 201201, end: 20121101
  2. LASIX [Concomitant]
     Route: 048
  3. VERAPAMIL [Concomitant]
     Route: 048
  4. ASA [Concomitant]
     Route: 048

REACTIONS (2)
  - Serum sickness [Recovered/Resolved with Sequelae]
  - Urinary tract infection [Recovered/Resolved]
